FAERS Safety Report 7039411-7 (Version None)
Quarter: 2010Q4

REPORT INFORMATION
  Report Type: 
  Country: None (occurrence: None)
  Receive Date: 20101012
  Receipt Date: 20101005
  Transmission Date: 20110411
  Serious: Yes (Hospitalization)
  Sender: FDA-Public Use
  Company Number: US-SANOFI-AVENTIS-2010SA061248

PATIENT
  Age: 52 Year
  Sex: Female

DRUGS (2)
  1. LANTUS [Suspect]
     Indication: DIABETES MELLITUS
     Dosage: IN AM DOSE:15 UNIT(S)
     Route: 058
     Dates: start: 20100201
  2. SOLOSTAR [Suspect]
     Indication: DIABETES MELLITUS
     Dates: start: 20100201

REACTIONS (1)
  - MENTAL DISORDER [None]
